FAERS Safety Report 17468408 (Version 1)
Quarter: 2020Q1

REPORT INFORMATION
  Report Type: Spontaneous
  Country: US (occurrence: US)
  Receive Date: 20200227
  Receipt Date: 20200227
  Transmission Date: 20200409
  Serious: Yes (Life-Threatening, Hospitalization)
  Sender: FDA-Public Use
  Company Number: None

PATIENT
  Age: 63 Year
  Sex: Female
  Weight: 44.91 kg

DRUGS (16)
  1. PANTOPRAZOLE 20MG [Concomitant]
     Active Substance: PANTOPRAZOLE SODIUM
  2. LOMOTIL 2.5-0.025 [Concomitant]
  3. HYOSCYAMINE 0.125MG [Concomitant]
     Active Substance: HYOSCYAMINE
  4. CAPECITABINE. [Suspect]
     Active Substance: CAPECITABINE
     Indication: PANCREATIC CARCINOMA
     Route: 048
     Dates: start: 20191217, end: 20200227
  5. MIRTAZAPINE 15MG [Concomitant]
     Active Substance: MIRTAZAPINE
  6. CREON 36000 U [Concomitant]
  7. STOOL SOFTENER 100MG [Concomitant]
  8. MULTIVITAMIN [Concomitant]
     Active Substance: VITAMINS
  9. MARINOL 2.5MG [Concomitant]
  10. PROMETHAZINE 25MG [Concomitant]
  11. ZOFRAN 8MG [Concomitant]
  12. MORPHINE SULFATE ER 15MG [Concomitant]
     Active Substance: MORPHINE SULFATE
  13. CAPECITABINE. [Suspect]
     Active Substance: CAPECITABINE
     Indication: PANCREATIC CARCINOMA
     Route: 048
     Dates: start: 20191217, end: 20200227
  14. NORCO 5-325MG [Concomitant]
  15. PROBIOTICS [Concomitant]
     Active Substance: PROBIOTICS NOS
  16. MAGIC MOUTHWASH [Concomitant]
     Active Substance: DIPHENHYDRAMINE HYDROCHLORIDE\LIDOCAINE HYDROCHLORIDE\NYSTATIN

REACTIONS (1)
  - Hospice care [None]
